FAERS Safety Report 4570729-3 (Version None)
Quarter: 2005Q1

REPORT INFORMATION
  Report Type: 
  Country: None (occurrence: None)
  Receive Date: 20050202
  Receipt Date: 20050201
  Transmission Date: 20050727
  Serious: Yes (Hospitalization)
  Sender: FDA-Public Use
  Company Number: TCI2005A00069

PATIENT
  Age: 49 Year
  Sex: Male

DRUGS (9)
  1. ACTOS [Suspect]
     Indication: DIABETES MELLITUS NON-INSULIN-DEPENDENT
     Dosage: 15 MG (15 MG,1 IN 1 D), PER ORAL
     Route: 048
     Dates: start: 20041231, end: 20050101
  2. AMARYL [Concomitant]
  3. PIPERACILLIN SODIUM [Concomitant]
  4. CLINDAMYCIN HCL [Concomitant]
  5. FAMOTIDINE [Concomitant]
  6. AMINOFLUID (AMINOFLUID) [Concomitant]
  7. SOLDEM 3A (SOLDEM 3A) [Concomitant]
  8. NOVOLIN R [Concomitant]
  9. SEISHOKU (SODIUM CHLORIDE) [Concomitant]

REACTIONS (6)
  - OEDEMA [None]
  - PAIN [None]
  - RASH ERYTHEMATOUS [None]
  - RASH PRURITIC [None]
  - SENSORY DISTURBANCE [None]
  - TREATMENT NONCOMPLIANCE [None]
